FAERS Safety Report 7980649-X (Version None)
Quarter: 2011Q4

REPORT INFORMATION
  Report Type: 
  Country: None (occurrence: None)
  Receive Date: 20111214
  Receipt Date: 20111208
  Transmission Date: 20120403
  Serious: Yes (Other)
  Sender: FDA-Public Use
  Company Number: CHPA2011US017626

PATIENT
  Age: 57 Year
  Sex: Male

DRUGS (1)
  1. TRANSDERM SCOP [Suspect]
     Dosage: 1 DF, QD
     Route: 062
     Dates: start: 20080101

REACTIONS (2)
  - AMNESIA [None]
  - ACCIDENTAL EXPOSURE [None]
